FAERS Safety Report 25372180 (Version 1)
Quarter: 2025Q2

REPORT INFORMATION
  Report Type: Spontaneous
  Country: TH (occurrence: TH)
  Receive Date: 20250529
  Receipt Date: 20250529
  Transmission Date: 20250716
  Serious: Yes (Hospitalization, Other)
  Sender: ASTELLAS
  Company Number: TH-GILEAD-2025-0714456

PATIENT
  Age: 51 Year
  Sex: Male

DRUGS (1)
  1. AMPHOTERICIN B [Suspect]
     Active Substance: AMPHOTERICIN B
     Indication: Product used for unknown indication
     Dosage: 5 MG/K/DAY
     Route: 065
     Dates: start: 20241118, end: 20241204

REACTIONS (5)
  - Disease progression [Recovered/Resolved with Sequelae]
  - Legionella infection [Unknown]
  - Cytomegalovirus viraemia [Unknown]
  - Lung abscess [Unknown]
  - Pulmonary mass [Unknown]

NARRATIVE: CASE EVENT DATE: 20241204
